FAERS Safety Report 18115733 (Version 1)
Quarter: 2020Q3

REPORT INFORMATION
  Report Type: Spontaneous
  Country: DK (occurrence: DK)
  Receive Date: 20200805
  Receipt Date: 20200805
  Transmission Date: 20201103
  Serious: Yes (Hospitalization)
  Sender: FDA-Public Use
  Company Number: DK-MYLANLABS-2020M1068792

PATIENT
  Age: 4 Year
  Sex: Female

DRUGS (2)
  1. METRONIDAZOLE. [Suspect]
     Active Substance: METRONIDAZOLE
     Indication: DRUG PROVOCATION TEST
     Dosage: DOSE AND STRENGTH: UNKNOWN. SINGLE DOSE GIVEN AT HOSPITAL.
     Dates: start: 20190604, end: 20190604
  2. METRONIDAZOLE. [Suspect]
     Active Substance: METRONIDAZOLE
     Indication: DRUG PROVOCATION TEST
     Dosage: 21 MILLILITER, QD, STRENGTH: UNKNOWN
     Route: 048
     Dates: start: 20190604, end: 20190604

REACTIONS (7)
  - Pyrexia [Unknown]
  - Fat necrosis [Recovered/Resolved]
  - Malaise [Unknown]
  - Vomiting [Unknown]
  - Rash [Unknown]
  - Pancreatitis [Unknown]
  - Panniculitis [Unknown]

NARRATIVE: CASE EVENT DATE: 201906
